FAERS Safety Report 8600865-3 (Version None)
Quarter: 2012Q3

REPORT INFORMATION
  Report Type: 
  Country: None (occurrence: None)
  Receive Date: 20120817
  Receipt Date: 20070731
  Transmission Date: 20120928
  Serious: Yes (Other)
  Sender: FDA-Public Use
  Company Number: CO-PFIZER INC-2012199572

PATIENT
  Age: 67 Year
  Sex: Male

DRUGS (3)
  1. QUINAPRIL AND HYDROCHLOROTHIAZIDE [Suspect]
     Dosage: [QUINAPRIL HCL 20MG]/ [HYDROCHLOROTHIAZIDE 12.5MG] HCT, 1X/DAY
     Route: 065
  2. LIPITOR [Suspect]
     Dosage: 10 MG, 1X/DAY
     Route: 065
  3. ASPIRIN [Concomitant]
     Dosage: 100 MG, 1X/DAY
     Route: 065

REACTIONS (4)
  - HYPERTENSIVE EMERGENCY [None]
  - HYPOACUSIS [None]
  - TYPE V HYPERLIPIDAEMIA [None]
  - MUSCULOSKELETAL PAIN [None]
